FAERS Safety Report 18373848 (Version 1)
Quarter: 2020Q4

REPORT INFORMATION
  Report Type: Other
  Country: IN (occurrence: IN)
  Receive Date: 20201012
  Receipt Date: 20201012
  Transmission Date: 20210114
  Serious: Yes (Other)
  Sender: FDA-Public Use
  Company Number: IN-KNIGHT THERAPEUTICS (USA) INC.-2092678

PATIENT
  Age: 30 Year
  Sex: Female

DRUGS (3)
  1. IMPAVIDO [Suspect]
     Active Substance: MILTEFOSINE
     Indication: VISCERAL LEISHMANIASIS
     Dates: start: 2019, end: 2019
  2. PREDNISOLONE ACETATE. [Concomitant]
     Active Substance: PREDNISOLONE ACETATE
     Route: 031
     Dates: start: 2019, end: 2019
  3. MOXIFLOXACIN. [Concomitant]
     Active Substance: MOXIFLOXACIN
     Route: 031
     Dates: start: 2019, end: 2019

REACTIONS (3)
  - Keratitis [Recovered/Resolved]
  - Intentional product misuse [None]
  - Off label use [None]

NARRATIVE: CASE EVENT DATE: 2019
